FAERS Safety Report 15488641 (Version 1)
Quarter: 2018Q4

REPORT INFORMATION
  Report Type: Spontaneous
  Country: US (occurrence: US)
  Receive Date: 20181003
  Receipt Date: 20181003
  Transmission Date: 20190205
  Serious: No
  Sender: FDA-Public Use
  Company Number: None

PATIENT
  Age: 73 Year
  Sex: Male
  Weight: 108 kg

DRUGS (1)
  1. IODIXANOL. [Suspect]
     Active Substance: IODIXANOL
     Indication: PRODUCT USED FOR UNKNOWN INDICATION
     Dosage: ?          OTHER ROUTE:OTHER?
     Dates: start: 20180518, end: 20180518

REACTIONS (6)
  - Acute kidney injury [None]
  - Nephropathy toxic [None]
  - Dialysis [None]
  - Septic shock [None]
  - Acidosis [None]
  - Renal tubular necrosis [None]

NARRATIVE: CASE EVENT DATE: 20180518
